FAERS Safety Report 7760350-8 (Version None)
Quarter: 2011Q3

REPORT INFORMATION
  Report Type: 
  Country: None (occurrence: None)
  Receive Date: 20110919
  Receipt Date: 20110912
  Transmission Date: 20111222
  Serious: Yes (Death, Hospitalization, Other)
  Sender: FDA-Public Use
  Company Number: US-BAYER-200940561NA

PATIENT
  Age: 52 Year
  Sex: Female
  Weight: 108.84 kg

DRUGS (31)
  1. LEVAQUIN [Concomitant]
     Indication: PRODUCT USED FOR UNKNOWN INDICATION
     Dosage: 500 MG, UNK
     Route: 048
  2. VIOXX [Concomitant]
     Indication: PRODUCT USED FOR UNKNOWN INDICATION
     Dosage: 25 MG, UNK
     Route: 048
  3. PLATELETS [Concomitant]
  4. CELEBREX [Concomitant]
     Indication: PRODUCT USED FOR UNKNOWN INDICATION
     Dosage: 200 MG, UNK
     Route: 048
  5. NEURONTIN [Concomitant]
     Indication: PRODUCT USED FOR UNKNOWN INDICATION
     Dosage: 100 MG, UNK
     Route: 048
  6. CATAPRES [Concomitant]
     Dosage: 4 MG, HS
     Route: 048
  7. VANCOMYCIN [Concomitant]
     Dosage: 100MG
     Route: 042
     Dates: start: 19981201, end: 19981201
  8. PROTAMINE [Concomitant]
     Dosage: 480MG
     Route: 042
     Dates: start: 19981201, end: 19981201
  9. HEPARIN [Concomitant]
     Dosage: 33,000 UNITS
     Route: 042
     Dates: start: 19981201, end: 19981201
  10. METOPROLOL TARTRATE [Concomitant]
     Indication: PRODUCT USED FOR UNKNOWN INDICATION
     Dosage: 50 MG, UNK
     Route: 048
  11. PHENERGAN HCL [Concomitant]
     Indication: PRODUCT USED FOR UNKNOWN INDICATION
     Dosage: 25 MG, UNK
  12. TRASYLOL [Suspect]
     Indication: AORTIC VALVE REPLACEMENT
     Dosage: LOADING DOSE, 200ML THEN, 50CC/HR
     Route: 042
     Dates: start: 19981201, end: 19981201
  13. ZYRTEC [Concomitant]
     Indication: PRODUCT USED FOR UNKNOWN INDICATION
     Dosage: 5 MG, UNK
     Route: 048
  14. CARDURA [Concomitant]
     Indication: PRODUCT USED FOR UNKNOWN INDICATION
     Dosage: 8 MG, UNK
     Route: 048
  15. MINOXIDIL [Concomitant]
     Indication: PRODUCT USED FOR UNKNOWN INDICATION
     Dosage: 10 MG, UNK
     Route: 048
  16. CAPTOPRIL [Concomitant]
     Dosage: 6.25 MG, TID
     Route: 048
  17. CALAN SLOW RELEASE [Concomitant]
     Dosage: 120 MG, QD
     Route: 048
  18. CEFTAZIDIME [Concomitant]
     Dosage: 100MG
     Route: 042
     Dates: start: 19981201, end: 19981201
  19. TRASYLOL [Suspect]
     Indication: CORONARY ARTERY BYPASS
     Dosage: TEST DOSE 1ML
     Route: 042
     Dates: start: 19981201, end: 19981201
  20. TRASYLOL [Suspect]
     Indication: INTRA-AORTIC BALLOON PLACEMENT
  21. NEPHROVITE [VIT C,VIT H,B5,B12,B9,B3,B6,B2,B1 HCL] [Concomitant]
     Dosage: ONE DAILY
     Route: 048
  22. MIDAZOLAM HCL [Concomitant]
     Dosage: 10MG
     Route: 042
     Dates: start: 19981201, end: 19981201
  23. FENTANYL [Concomitant]
     Dosage: 1000UG
     Route: 042
     Dates: start: 19981201, end: 19981201
  24. METHYLPREDNISOLONE SODIUM SUCCINATE [Concomitant]
     Dosage: 125MG
     Route: 042
     Dates: start: 19981201, end: 19981201
  25. HYDROCHLOROTHIAZIDE [Concomitant]
     Indication: PRODUCT USED FOR UNKNOWN INDICATION
     Dosage: 25 MG, UNK
     Route: 048
  26. COUMADIN [Concomitant]
     Indication: PRODUCT USED FOR UNKNOWN INDICATION
     Dosage: 1 MG, UNK
     Route: 048
  27. QUININE [Concomitant]
     Dosage: 260 MG, UNK
     Route: 048
  28. CATAPRES [Concomitant]
     Dosage: 0.2 MG, Q4HR
     Route: 048
  29. TENORMIN [Concomitant]
     Dosage: 25 MG, BID
     Route: 048
  30. DOPAMINE HCL [Concomitant]
     Dosage: 303401MG
     Route: 042
     Dates: start: 19981201, end: 19981201
  31. DIPHENHYDRAMINE HCL [Concomitant]
     Dosage: 50MG
     Route: 042
     Dates: start: 19981201, end: 19981201

REACTIONS (13)
  - STRESS [None]
  - INJURY [None]
  - RENAL IMPAIRMENT [None]
  - FEAR [None]
  - DEATH [None]
  - RENAL INJURY [None]
  - ANXIETY [None]
  - RENAL FAILURE [None]
  - ANHEDONIA [None]
  - UNEVALUABLE EVENT [None]
  - MULTI-ORGAN FAILURE [None]
  - EMOTIONAL DISTRESS [None]
  - PAIN [None]
